FAERS Safety Report 14681472 (Version 2)
Quarter: 2018Q2

REPORT INFORMATION
  Report Type: Spontaneous
  Country: US (occurrence: US)
  Receive Date: 20180326
  Receipt Date: 20180426
  Transmission Date: 20180711
  Serious: No
  Sender: FDA-Public Use
  Company Number: US-B.I. PHARMACEUTICALS,INC./RIDGEFIELD-2018-BI-015490

PATIENT
  Age: 89 Year
  Sex: Female

DRUGS (1)
  1. SPIRIVA [Suspect]
     Active Substance: TIOTROPIUM BROMIDE MONOHYDRATE
     Indication: BRONCHIECTASIS
     Route: 055
     Dates: start: 201609

REACTIONS (4)
  - Extra dose administered [Not Recovered/Not Resolved]
  - Product packaging issue [Unknown]
  - Product use in unapproved indication [Unknown]
  - Product physical issue [Unknown]

NARRATIVE: CASE EVENT DATE: 201609
